FAERS Safety Report 8292568-2 (Version None)
Quarter: 2012Q2

REPORT INFORMATION
  Report Type: 
  Country: None (occurrence: None)
  Receive Date: 20120417
  Receipt Date: 20110926
  Transmission Date: 20120825
  Serious: No
  Sender: FDA-Public Use
  Company Number: US-ASTRAZENECA-2010SE35649

PATIENT
  Age: 814 Month
  Sex: Female
  Weight: 59 kg

DRUGS (3)
  1. NEXIUM [Suspect]
     Indication: HIATUS HERNIA
     Route: 048
     Dates: start: 20080101
  2. NEXIUM [Suspect]
     Indication: ULCER
     Route: 048
     Dates: start: 20080101
  3. BLOOD PRESSURE MEDICATION [Concomitant]

REACTIONS (3)
  - DRUG EFFECT DECREASED [None]
  - ABDOMINAL PAIN UPPER [None]
  - DRUG DOSE OMISSION [None]
